FAERS Safety Report 9692509 (Version 1)
Quarter: 2013Q4

REPORT INFORMATION
  Report Type: Spontaneous
  Country: US (occurrence: US)
  Receive Date: 20131118
  Receipt Date: 20131118
  Transmission Date: 20140711
  Serious: No
  Sender: FDA-Public Use
  Company Number: US-PFIZER INC-2013328542

PATIENT
  Sex: Female

DRUGS (1)
  1. VENLAFAXINE HCL [Suspect]
     Dosage: 225 MG (THREE CAPSULES OF 75MG TOGETHER), 1X/DAY
     Route: 048

REACTIONS (4)
  - Drug ineffective [Unknown]
  - Intentional drug misuse [Unknown]
  - Malaise [Unknown]
  - Fatigue [Unknown]
